FAERS Safety Report 11192799 (Version 1)
Quarter: 2015Q2

REPORT INFORMATION
  Report Type: Spontaneous
  Country: US (occurrence: None)
  Receive Date: 20150612
  Receipt Date: 20150612
  Transmission Date: 20150821
  Serious: Yes (Other)
  Sender: FDA-Public Use
  Company Number: 903997-2015-00067

PATIENT
  Age: 85 Year
  Sex: Female

DRUGS (9)
  1. CARDIZEM [Concomitant]
     Active Substance: DILTIAZEM HYDROCHLORIDE
  2. METOPROLOL [Concomitant]
     Active Substance: METOPROLOL
  3. SYNTHROID [Concomitant]
     Active Substance: LEVOTHYROXINE SODIUM
  4. DIOVAN [Concomitant]
     Active Substance: VALSARTAN
  5. XALTA GTTS [Concomitant]
  6. ZOCOR [Concomitant]
     Active Substance: SIMVASTATIN
  7. BETIMOL GTTS [Concomitant]
  8. LEVULAN KERASTICK [Suspect]
     Active Substance: AMINOLEVULINIC ACID HYDROCHLORIDE
     Indication: ACTINIC KERATOSIS
     Route: 061
     Dates: start: 20150527
  9. ASA [Concomitant]
     Active Substance: ASPIRIN

REACTIONS (2)
  - Eye burns [None]
  - Vision blurred [None]

NARRATIVE: CASE EVENT DATE: 20150528
